FAERS Safety Report 4456325-7 (Version None)
Quarter: 2004Q3

REPORT INFORMATION
  Report Type: 
  Country: None (occurrence: None)
  Receive Date: 20040917
  Receipt Date: 20040903
  Transmission Date: 20050211
  Serious: Yes (Hospitalization)
  Sender: FDA-Public Use
  Company Number: 04P-163-0272471-00

PATIENT
  Age: 65 Year
  Sex: Female

DRUGS (7)
  1. HUMIRA [Suspect]
     Indication: RHEUMATOID ARTHRITIS
     Dosage: 40 MG, 1 IN 2 WK, SUBCUTANEOUS
     Route: 058
     Dates: start: 20030501, end: 20040801
  2. LISINOPRIL [Concomitant]
  3. INSULIN GLARGINE [Concomitant]
  4. METFORMIN HCL [Concomitant]
  5. GEMFIBROZIL [Concomitant]
  6. LEUCOVORIN CALCIUM [Concomitant]
  7. METHOTREXATE [Concomitant]

REACTIONS (7)
  - GRAND MAL CONVULSION [None]
  - HAEMOGLOBIN DECREASED [None]
  - LOCALISED INFECTION [None]
  - OEDEMA PERIPHERAL [None]
  - PAIN IN EXTREMITY [None]
  - STOMATITIS [None]
  - URINARY TRACT INFECTION [None]
